FAERS Safety Report 8572040-2 (Version None)
Quarter: 2012Q3

REPORT INFORMATION
  Report Type: 
  Country: None (occurrence: None)
  Receive Date: 20120806
  Receipt Date: 20120724
  Transmission Date: 20120928
  Serious: Yes (Hospitalization)
  Sender: FDA-Public Use
  Company Number: US-SANOFI-AVENTIS-2012SA054097

PATIENT
  Age: 33 Year
  Sex: Male

DRUGS (2)
  1. AMBIEN [Suspect]
     Indication: INSOMNIA
  2. CIMETIDINE [Suspect]

REACTIONS (3)
  - AMNESIA [None]
  - AFFECTIVE DISORDER [None]
  - SUICIDE ATTEMPT [None]
